FAERS Safety Report 5828030-3 (Version None)
Quarter: 2008Q3

REPORT INFORMATION
  Report Type: 
  Country: None (occurrence: None)
  Receive Date: 20080730
  Receipt Date: 20070723
  Transmission Date: 20090109
  Serious: No
  Sender: FDA-Public Use
  Company Number: A0666855A

PATIENT
  Sex: Male

DRUGS (1)
  1. ZANTAC [Suspect]
     Indication: GASTRIC ULCER
     Dosage: 300MG UNKNOWN
     Dates: start: 20070701

REACTIONS (1)
  - DRUG INEFFECTIVE [None]
